FAERS Safety Report 6818210-2 (Version None)
Quarter: 2010Q3

REPORT INFORMATION
  Report Type: 
  Country: None (occurrence: None)
  Receive Date: 20100706
  Receipt Date: 20070524
  Transmission Date: 20110219
  Serious: No
  Sender: FDA-Public Use
  Company Number: US-PFIZER INC-2007039051

PATIENT
  Sex: Female
  Weight: 57.15 kg

DRUGS (3)
  1. ZITHROMAX [Suspect]
     Indication: ANTIBIOTIC PROPHYLAXIS
     Route: 048
     Dates: start: 20070510, end: 20070515
  2. OXYCODONE HCL [Concomitant]
  3. VITAMINS [Concomitant]

REACTIONS (1)
  - DEAFNESS UNILATERAL [None]
